FAERS Safety Report 5401293-4 (Version None)
Quarter: 2007Q3

REPORT INFORMATION
  Report Type: 
  Country: None (occurrence: None)
  Receive Date: 20070726
  Receipt Date: 20070716
  Transmission Date: 20080115
  Serious: Yes (Hospitalization)
  Sender: FDA-Public Use
  Company Number: 2007BI013517

PATIENT
  Age: 77 Year
  Sex: Female
  Weight: 70.3075 kg

DRUGS (2)
  1. AVONEX LYOPHILIZED [Suspect]
     Dosage: 30 UG; QW;IM
     Route: 030
     Dates: start: 19960101, end: 20030101
  2. AVONEX [Suspect]
     Dosage: 30 UG; QW;IM
     Route: 030
     Dates: start: 20030101

REACTIONS (2)
  - FALL [None]
  - FEMUR FRACTURE [None]
